FAERS Safety Report 4610424-5 (Version None)
Quarter: 2005Q1

REPORT INFORMATION
  Report Type: 
  Country: None (occurrence: None)
  Receive Date: 20050314
  Receipt Date: 20050310
  Transmission Date: 20050727
  Serious: Yes (Hospitalization, Other)
  Sender: FDA-Public Use
  Company Number: USA-2003-0006203

PATIENT
  Age: 36 Year
  Sex: Male
  Weight: 87.1 kg

DRUGS (17)
  1. OXYCONTIN [Suspect]
     Indication: PAIN
     Dosage: INTRAVENOUS
     Route: 042
     Dates: start: 20000901, end: 20020221
  2. DEMEROL [Suspect]
     Indication: PAIN
     Dosage: INTRAVENOUS
     Route: 042
  3. DILAUDID [Suspect]
     Indication: PAIN
     Dosage: INTRAVENOUS
     Route: 042
  4. COCAINE (COCAINE) [Suspect]
  5. ALCOHOL (ETHANOL) [Suspect]
     Dosage: 12, DAILY, ORAL
     Route: 048
  6. MARIJUANA (CANNABIS) [Suspect]
  7. PERCODAN [Suspect]
  8. HUMULIN (INSULIN ISOPHANE, HUMAN BIOSYNTHETIC, INSULIN HUMAN) [Concomitant]
  9. FOLIC ACID [Concomitant]
  10. ZOLOFT [Concomitant]
  11. HYDROCHLOROTHIAZIDE [Concomitant]
  12. PAXIL [Concomitant]
  13. RESTORIL [Concomitant]
  14. VITAMIN E [Concomitant]
  15. PREVACID [Concomitant]
  16. CELEBREX [Concomitant]
  17. ZANTAC [Concomitant]

REACTIONS (20)
  - ABDOMINAL PAIN UPPER [None]
  - ALCOHOLISM [None]
  - ANXIETY [None]
  - ARTHRALGIA [None]
  - DEPRESSION [None]
  - DRUG ABUSER [None]
  - DRUG DEPENDENCE [None]
  - DRUG SCREEN POSITIVE [None]
  - DRUG WITHDRAWAL SYNDROME [None]
  - EMOTIONAL DISTRESS [None]
  - GASTRITIS [None]
  - HEADACHE [None]
  - INJURY [None]
  - INSOMNIA [None]
  - MENTAL DISORDER [None]
  - NAUSEA [None]
  - PAIN [None]
  - POLYSUBSTANCE DEPENDENCE [None]
  - SICKLE CELL ANAEMIA WITH CRISIS [None]
  - VOMITING [None]
